FAERS Safety Report 8621991-9 (Version None)
Quarter: 2012Q3

REPORT INFORMATION
  Report Type: 
  Country: None (occurrence: None)
  Receive Date: 20120823
  Receipt Date: 20120823
  Transmission Date: 20120928
  Serious: Yes (Other)
  Sender: FDA-Public Use
  Company Number: None

PATIENT
  Age: 54 Year
  Sex: Female
  Weight: 86.1834 kg

DRUGS (1)
  1. OPANA ER [Suspect]

REACTIONS (3)
  - MALAISE [None]
  - HEART RATE ABNORMAL [None]
  - CHEST PAIN [None]
